FAERS Safety Report 7634467-2 (Version None)
Quarter: 2011Q3

REPORT INFORMATION
  Report Type: 
  Country: None (occurrence: None)
  Receive Date: 20110725
  Receipt Date: 20110718
  Transmission Date: 20111222
  Serious: Yes (Death, Other)
  Sender: FDA-Public Use
  Company Number: PHHY2011JP65230

PATIENT

DRUGS (5)
  1. CYCLOSPORINE [Suspect]
     Indication: FAMILIAL HAEMOPHAGOCYTIC LYMPHOHISTIOCYTOSIS
     Dosage: 1.0 MG/KG/DAY
  2. ETOPOSIDE [Concomitant]
     Dosage: 75 MG/M2, EVERY 4 DAYS
  3. ETOPOSIDE [Concomitant]
     Dosage: 150 MG/M2, (AT 1/10 DOSE (15 MG/M2 OF BODY SURFACE AREA)
  4. DEXAMETHASONE [Suspect]
     Indication: FAMILIAL HAEMOPHAGOCYTIC LYMPHOHISTIOCYTOSIS
     Dosage: 1 MG/KG/DAY
  5. METHYLPREDNISOLONE [Concomitant]
     Indication: FAMILIAL HAEMOPHAGOCYTIC LYMPHOHISTIOCYTOSIS
     Dosage: 25 MG/KG/DAY

REACTIONS (6)
  - PYREXIA [None]
  - RETINOPATHY [None]
  - COMPLICATIONS OF TRANSPLANT SURGERY [None]
  - GROWTH RETARDATION [None]
  - C-REACTIVE PROTEIN ABNORMAL [None]
  - RESPIRATORY DISTRESS [None]
